FAERS Safety Report 4485793-X (Version None)
Quarter: 2004Q4

REPORT INFORMATION
  Report Type: 
  Country: None (occurrence: None)
  Receive Date: 20041026
  Receipt Date: 20040913
  Transmission Date: 20050328
  Serious: Yes (Life-Threatening, Hospitalization)
  Sender: FDA-Public Use
  Company Number: DE-ROCHE-380399

PATIENT
  Age: 54 Year
  Sex: Female
  Weight: 65 kg

DRUGS (8)
  1. CAPECITABINE [Suspect]
     Indication: BREAST CANCER
     Dosage: GIVEN 1-14 DAYS FOLLOWED BY 1 WEEK REST.
     Route: 048
     Dates: start: 20040415
  2. CAPECITABINE [Suspect]
     Dosage: GIVEN 1-14 DAYS FOLLOWED BY 1 WEEK REST.
     Route: 048
     Dates: start: 20040617, end: 20040622
  3. CAPECITABINE [Suspect]
     Dosage: GIVEN 1-14 DAYS FOLLOWED BY 1 WEEK REST.
     Route: 048
     Dates: start: 20040708, end: 20040708
  4. CAPECITABINE [Suspect]
     Route: 048
  5. PACLITAXEL [Suspect]
     Indication: BREAST CANCER
     Dosage: GIVEN ON DAY 1.
     Route: 042
     Dates: start: 20040415
  6. PACLITAXEL [Suspect]
     Route: 042
     Dates: start: 20040617, end: 20040617
  7. PACLITAXEL [Suspect]
     Dosage: GIVEN ON DAY1.
     Route: 042
     Dates: start: 20040708, end: 20040708
  8. PACLITAXEL [Suspect]
     Route: 042

REACTIONS (6)
  - DIARRHOEA [None]
  - GENERAL PHYSICAL HEALTH DETERIORATION [None]
  - INTESTINAL PERFORATION [None]
  - NAUSEA [None]
  - SMALL INTESTINAL PERFORATION [None]
  - VOMITING [None]
